FAERS Safety Report 17957034 (Version 1)
Quarter: 2020Q2

REPORT INFORMATION
  Report Type: Spontaneous
  Country: US (occurrence: US)
  Receive Date: 20200629
  Receipt Date: 20200629
  Transmission Date: 20200714
  Serious: Yes (Other)
  Sender: FDA-Public Use
  Company Number: None

PATIENT
  Age: 65 Year
  Sex: Male
  Weight: 75 kg

DRUGS (7)
  1. TOCILIZUMAB 600MG IV X1 [Concomitant]
     Dates: start: 20200530, end: 20200530
  2. REMDESIVIR. [Suspect]
     Active Substance: REMDESIVIR
     Indication: COVID-19
     Route: 042
  3. SODIUM BICARBONATE 150 MEQ/ 1000 ML SWI [Concomitant]
     Dates: start: 20200531
  4. REMDESIVIR. [Suspect]
     Active Substance: REMDESIVIR
     Indication: COVID-19
     Dosage: ?          OTHER FREQUENCY:ONCE;?
     Route: 042
  5. DIPRIVAN 1000 MG/100 ML INFUSION [Concomitant]
     Dates: start: 20200530
  6. VASOPRESSIN 40 UNIT/100 ML NS [Concomitant]
     Dates: start: 20200530
  7. NOREPINEPHRINE 16MG/250 ML INFUSION [Concomitant]
     Dates: start: 20200530

REACTIONS (3)
  - Glomerular filtration rate decreased [None]
  - COVID-19 [None]
  - Blood creatinine increased [None]
